FAERS Safety Report 22535532 (Version 1)
Quarter: 2023Q2

REPORT INFORMATION
  Report Type: Report from Study
  Country: US (occurrence: US)
  Receive Date: 20230608
  Receipt Date: 20230608
  Transmission Date: 20230722
  Serious: Yes (Hospitalization, Other)
  Sender: FDA-Public Use
  Company Number: US-GILEAD-2023-0627145

PATIENT
  Age: 36 Year
  Sex: Female

DRUGS (2)
  1. AMBRISENTAN [Suspect]
     Active Substance: AMBRISENTAN
     Indication: Pulmonary arterial hypertension
     Dosage: 10 MG, QD
     Route: 065
     Dates: start: 20220323
  2. TADALAFIL [Concomitant]
     Active Substance: TADALAFIL
     Dosage: UNK
     Route: 065

REACTIONS (4)
  - Haemoglobin decreased [Unknown]
  - Varices oesophageal [Unknown]
  - Dyspnoea exertional [Unknown]
  - Fatigue [Unknown]

NARRATIVE: CASE EVENT DATE: 20230502
